FAERS Safety Report 5898411-0 (Version None)
Quarter: 2008Q3

REPORT INFORMATION
  Report Type: 
  Country: None (occurrence: None)
  Receive Date: 20080925
  Receipt Date: 20071024
  Transmission Date: 20090109
  Serious: No
  Sender: FDA-Public Use
  Company Number: A0689552A

PATIENT
  Age: 49 Year
  Sex: Female

DRUGS (2)
  1. WELLBUTRIN XL [Suspect]
     Indication: DEPRESSION
     Dosage: 150MG PER DAY
     Route: 048
     Dates: start: 20071019
  2. TYLENOL W/ CODEINE [Concomitant]

REACTIONS (4)
  - ABNORMAL DREAMS [None]
  - PARAESTHESIA ORAL [None]
  - RASH PRURITIC [None]
  - SENSATION OF FOREIGN BODY [None]
